FAERS Safety Report 16320989 (Version 2)
Quarter: 2019Q2

REPORT INFORMATION
  Report Type: Spontaneous
  Country: DE (occurrence: DE)
  Receive Date: 20190516
  Receipt Date: 20190524
  Transmission Date: 20190711
  Serious: Yes (Hospitalization, Other)
  Sender: FDA-Public Use
  Company Number: DE-BAYER-2019-094668

PATIENT
  Age: 15 Year
  Sex: Female
  Weight: 47 kg

DRUGS (1)
  1. CLARITINE 10 MG [Suspect]
     Active Substance: LORATADINE
     Indication: SEASONAL ALLERGY
     Dosage: 10 MG, UNK
     Route: 048
     Dates: start: 20190419, end: 20190421

REACTIONS (8)
  - Generalised tonic-clonic seizure [Recovered/Resolved]
  - Eye movement disorder [Recovered/Resolved]
  - Disorientation [Recovered/Resolved]
  - Fatigue [Recovered/Resolved]
  - Foaming at mouth [Recovered/Resolved]
  - Unresponsive to stimuli [Recovered/Resolved]
  - Fall [Recovered/Resolved]
  - Dizziness [Recovered/Resolved]

NARRATIVE: CASE EVENT DATE: 20190421
